FAERS Safety Report 4809785-3 (Version None)
Quarter: 2005Q4

REPORT INFORMATION
  Report Type: 
  Country: None (occurrence: None)
  Receive Date: 20051024
  Receipt Date: 20051014
  Transmission Date: 20060501
  Serious: Yes (Hospitalization)
  Sender: FDA-Public Use
  Company Number: 2005PV003172

PATIENT
  Age: 57 Year
  Sex: Female
  Weight: 149 kg

DRUGS (6)
  1. BYETTA [Suspect]
     Indication: DIABETES MELLITUS NON-INSULIN-DEPENDENT
     Dosage: 5 MCG; BID; SC
     Route: 058
     Dates: start: 20050101
  2. AVANDIA [Concomitant]
  3. PLAVIX [Concomitant]
  4. COREG [Concomitant]
  5. NOVOLOG [Concomitant]
  6. VYTORIN [Concomitant]

REACTIONS (2)
  - CORONARY ARTERY DISEASE [None]
  - DYSPNOEA EXACERBATED [None]
